FAERS Safety Report 6964959-0 (Version None)
Quarter: 2010Q3

REPORT INFORMATION
  Report Type: 
  Country: None (occurrence: None)
  Receive Date: 20100903
  Receipt Date: 20100825
  Transmission Date: 20110219
  Serious: Yes (Hospitalization)
  Sender: FDA-Public Use
  Company Number: US-ASTRAZENECA-2010SE40179

PATIENT
  Age: 86 Year
  Sex: Male

DRUGS (2)
  1. SEROQUEL [Suspect]
     Indication: RESTLESSNESS
     Route: 048
  2. SEROQUEL [Suspect]
     Indication: DEMENTIA
     Route: 048

REACTIONS (3)
  - CREATININE URINE INCREASED [None]
  - FACE OEDEMA [None]
  - POLLAKIURIA [None]
